FAERS Safety Report 24102331 (Version 1)
Quarter: 2024Q3

REPORT INFORMATION
  Report Type: Spontaneous
  Country: US (occurrence: US)
  Receive Date: 20240717
  Receipt Date: 20240717
  Transmission Date: 20241016
  Serious: Yes (Death, Hospitalization, Other)
  Sender: Vantive US Healthcare
  Company Number: US-BAXTER-2024BAX015785

PATIENT
  Age: 71 Year
  Sex: Male

DRUGS (7)
  1. DIANEAL [Suspect]
     Active Substance: CALCIUM CHLORIDE\DEXTROSE\MAGNESIUM CHLORIDE\SODIUM CHLORIDE\SODIUM LACTATE
     Indication: End stage renal disease
     Dosage: 2 BAGS, 2.9 LITERS, 4 TIMES DAILY
     Route: 033
     Dates: start: 20221102
  2. EXTRANEAL [Suspect]
     Active Substance: CALCIUM CHLORIDE\ICODEXTRIN\MAGNESIUM CHLORIDE\SODIUM CHLORIDE\SODIUM LACTATE
     Indication: End stage renal disease
     Dosage: 1 BAG, 2.5 LITERS DAILY
     Route: 033
     Dates: start: 20221102
  3. ZYRTEC [Concomitant]
     Active Substance: CETIRIZINE HYDROCHLORIDE
     Indication: Seasonal allergy
     Route: 065
  4. TRULICITY [Concomitant]
     Active Substance: DULAGLUTIDE
     Dosage: 4.5 MG, ONCE A WEEK
     Route: 065
  5. TRULICITY [Concomitant]
     Active Substance: DULAGLUTIDE
     Dosage: DOSE INCREASED
     Route: 065
  6. BASAGLAR KWIKPEN [Concomitant]
     Active Substance: INSULIN GLARGINE
     Dosage: 20 UNITS ONE TIME A DAY
     Route: 065
  7. INSULIN NOS [Concomitant]
     Active Substance: INSULIN NOS
     Route: 065

REACTIONS (5)
  - Hypoglycaemia [Fatal]
  - Gastrointestinal haemorrhage [Recovered/Resolved]
  - Condition aggravated [Recovered/Resolved]
  - Haemoglobin decreased [Recovered/Resolved]
  - Cardiac disorder [Unknown]

NARRATIVE: CASE EVENT DATE: 20240207
